FAERS Safety Report 6022275-8 (Version None)
Quarter: 2008Q4

REPORT INFORMATION
  Report Type: 
  Country: None (occurrence: None)
  Receive Date: 20081230
  Receipt Date: 20081223
  Transmission Date: 20090506
  Serious: Yes (Hospitalization)
  Sender: FDA-Public Use
  Company Number: SE-JNJFOC-20081205761

PATIENT
  Sex: Male

DRUGS (4)
  1. HALDOL [Suspect]
     Route: 048
  2. HALDOL [Suspect]
     Indication: DRUG USE FOR UNKNOWN INDICATION
     Route: 048
  3. BACLOFEN [Suspect]
     Indication: DRUG USE FOR UNKNOWN INDICATION
     Route: 065
  4. WARFARIN SODIUM [Concomitant]
     Route: 048

REACTIONS (5)
  - DYSPHAGIA [None]
  - EATING DISORDER [None]
  - FATIGUE [None]
  - FLUID INTAKE REDUCED [None]
  - MUSCULOSKELETAL STIFFNESS [None]
